FAERS Safety Report 8942434 (Version 1)
Quarter: 2012Q4

REPORT INFORMATION
  Report Type: Spontaneous
  Country: TR (occurrence: None)
  Receive Date: 20121121
  Receipt Date: 20121121
  Transmission Date: 20130627
  Serious: Yes (Disabling)
  Sender: FDA-Public Use
  Company Number: FK201203395

PATIENT
  Age: 55 Year
  Sex: Male

DRUGS (2)
  1. PIPERACILLIN / TAZOBACTAM [Suspect]
     Indication: DIABETIC FOOT INFECTION
  2. DAPTOMYCIN [Suspect]
     Indication: DIABETIC FOOT INFECTION

REACTIONS (4)
  - Tinnitus [None]
  - Ear discomfort [None]
  - Deafness unilateral [None]
  - Sudden hearing loss [None]
